FAERS Safety Report 10615651 (Version 1)
Quarter: 2014Q4

REPORT INFORMATION
  Report Type: Spontaneous
  Country: US (occurrence: None)
  Receive Date: 20141125
  Receipt Date: 20141125
  Transmission Date: 20150529
  Serious: Yes (Other)
  Sender: FDA-Public Use
  Company Number: None

PATIENT
  Age: 16 Year
  Sex: Male
  Weight: 48.99 kg

DRUGS (2)
  1. RISPERIDONE. [Suspect]
     Active Substance: RISPERIDONE
     Indication: AUTISM
     Dosage: .75 MG PILL AM 1 MG PILL PM
     Route: 048
     Dates: start: 20140731, end: 20141124
  2. RISPERIDONE. [Suspect]
     Active Substance: RISPERIDONE
     Indication: AGGRESSION
     Dosage: .75 MG PILL AM 1 MG PILL PM
     Route: 048
     Dates: start: 20140731, end: 20141124

REACTIONS (6)
  - Restlessness [None]
  - Skin discolouration [None]
  - Dyskinesia [None]
  - Gynaecomastia [None]
  - Musculoskeletal disorder [None]
  - Nipple disorder [None]

NARRATIVE: CASE EVENT DATE: 20141124
